FAERS Safety Report 7362116-X (Version None)
Quarter: 2011Q1

REPORT INFORMATION
  Report Type: 
  Country: None (occurrence: None)
  Receive Date: 20110318
  Receipt Date: 20110308
  Transmission Date: 20110831
  Serious: Yes (Other)
  Sender: FDA-Public Use
  Company Number: US-CEPHALON-2011000504

PATIENT
  Sex: Female
  Weight: 57 kg

DRUGS (8)
  1. BACLOFEN [Concomitant]
  2. NUVIGIL [Suspect]
     Indication: FATIGUE
     Route: 048
     Dates: start: 20110107, end: 20110107
  3. TRAMADOL HCL [Concomitant]
     Indication: MULTIPLE SCLEROSIS
     Dates: start: 19970101
  4. ATENOLOL [Concomitant]
     Indication: HYPERTENSION
     Dates: start: 20060101
  5. HYDROCHLOROTHIAZIDE [Concomitant]
     Indication: HYPERTENSION
     Dates: start: 20100101
  6. PROVIGIL [Concomitant]
     Indication: FATIGUE
     Route: 048
     Dates: start: 20040101
  7. FLUTICASONE PROPIONATE [Concomitant]
  8. AVONEX [Concomitant]
     Dates: start: 20000101

REACTIONS (5)
  - FEELING ABNORMAL [None]
  - COGNITIVE DISORDER [None]
  - SPEECH DISORDER [None]
  - INTENTIONAL DRUG MISUSE [None]
  - BALANCE DISORDER [None]
